FAERS Safety Report 4560795-3 (Version None)
Quarter: 2005Q1

REPORT INFORMATION
  Report Type: 
  Country: None (occurrence: None)
  Receive Date: 20050124
  Receipt Date: 20050110
  Transmission Date: 20050727
  Serious: Yes (Hospitalization, Other)
  Sender: FDA-Public Use
  Company Number: HQWYE582112JAN05

PATIENT
  Age: 28 Year
  Sex: Female

DRUGS (5)
  1. ADVIL [Suspect]
     Indication: PHARYNGITIS
     Dosage: ORAL
     Route: 048
     Dates: start: 20040502, end: 20040502
  2. AMOXICILLIN TRIHYDRATE [Suspect]
     Indication: PHARYNGITIS
     Dosage: ORAL
     Route: 048
     Dates: start: 20040502
  3. ACETAMINOPHEN [Suspect]
     Indication: PHARYNGITIS
     Dosage: ORAL
     Route: 048
     Dates: start: 20040502
  4. NIFLURIL (NIFLUMIC ACID) [Concomitant]
  5. IBUPROFEN [Concomitant]

REACTIONS (18)
  - AGRANULOCYTOSIS [None]
  - BLOOD ELECTROLYTES DECREASED [None]
  - BLOOD IMMUNOGLOBULIN G INCREASED [None]
  - BLOOD PRESSURE DIASTOLIC DECREASED [None]
  - C-REACTIVE PROTEIN INCREASED [None]
  - EXANTHEM [None]
  - HAEMOGLOBIN DECREASED [None]
  - INFLAMMATION [None]
  - LIPIDS DECREASED [None]
  - LIVER FUNCTION TEST ABNORMAL [None]
  - LYMPHOCYTE MORPHOLOGY ABNORMAL [None]
  - NIKOLSKY'S SIGN [None]
  - PLATELET COUNT DECREASED [None]
  - PYREXIA [None]
  - RASH PUSTULAR [None]
  - SKIN NECROSIS [None]
  - SPINAL MYELOGRAM ABNORMAL [None]
  - TOXIC SKIN ERUPTION [None]
